FAERS Safety Report 12832761 (Version 1)
Quarter: 2016Q4

REPORT INFORMATION
  Report Type: Spontaneous
  Country: US (occurrence: US)
  Receive Date: 20161010
  Receipt Date: 20161010
  Transmission Date: 20170207
  Serious: No
  Sender: FDA-Public Use
  Company Number: US-GLAXOSMITHKLINE-US2016145962

PATIENT
  Age: 64 Year
  Sex: Female

DRUGS (1)
  1. EXCEDRIN MIGRAINE [Suspect]
     Active Substance: ACETAMINOPHEN\ASPIRIN\CAFFEINE
     Indication: HEADACHE
     Dosage: UNK (ONE IN THE MORNING AND ONE AND A HALF IN THE AFTERNOON)
     Route: 048
     Dates: start: 20161003

REACTIONS (2)
  - Unintentional use for unapproved indication [Unknown]
  - Incorrect dose administered [Unknown]
